FAERS Safety Report 7407446-8 (Version None)
Quarter: 2011Q2

REPORT INFORMATION
  Report Type: 
  Country: None (occurrence: None)
  Receive Date: 20110411
  Receipt Date: 20110316
  Transmission Date: 20111010
  Serious: Yes (Other)
  Sender: FDA-Public Use
  Company Number: US-BAYER-200811982NA

PATIENT
  Age: 49 Year
  Sex: Female
  Weight: 55 kg

DRUGS (43)
  1. MAGNEVIST [Suspect]
     Dates: start: 20001108, end: 20001108
  2. MAGNEVIST [Suspect]
     Dates: start: 20030320, end: 20030320
  3. RENAGEL [Concomitant]
  4. SENSIPAR [Concomitant]
  5. MYFORTIC [Concomitant]
  6. ALEVE [Concomitant]
  7. AMLODIPINE BESYLATE [Concomitant]
  8. MAGNEVIST [Suspect]
     Dates: start: 20050130, end: 20050130
  9. OMNISCAN [Suspect]
     Indication: NUCLEAR MAGNETIC RESONANCE IMAGING
     Dates: start: 20050130, end: 20050130
  10. SYNTHROID [Concomitant]
  11. FOLIC ACID [Concomitant]
  12. MIACALCIN [Concomitant]
  13. DEMADEX [Concomitant]
  14. CLONIDINE [Concomitant]
  15. MAGNEVIST [Suspect]
     Dates: start: 19981231, end: 19981231
  16. MAGNEVIST [Suspect]
     Dates: start: 20040520, end: 20040520
  17. PREMPRO [Concomitant]
  18. THYROID THERAPY [Concomitant]
  19. PREDNISONE [Concomitant]
  20. ARANESP [Concomitant]
  21. MAGNEVIST [Suspect]
     Dates: start: 19971117, end: 19971117
  22. MAGNEVIST [Suspect]
     Dates: start: 19991109, end: 19991109
  23. OMNISCAN [Suspect]
     Dates: start: 20050320, end: 20050320
  24. EPOGEN [Concomitant]
  25. CELEBREX [Concomitant]
  26. ADVAIR HFA [Concomitant]
  27. ACTIVASE [Concomitant]
  28. AMIGEN [Concomitant]
  29. ZESTRIL [Concomitant]
  30. FERROUS SULFATE TAB [Concomitant]
  31. PROGRAF [Concomitant]
  32. MAGNEVIST [Suspect]
     Dates: start: 20020130, end: 20020130
  33. ROCALTROL [Concomitant]
  34. NEPHROVITE [VIT C,VIT H,B5,B12,B9,B3,B6,B2,B1 HCL] [Concomitant]
  35. PROCARDIA [Concomitant]
  36. SPIRONOLACTONE [Concomitant]
  37. ZEMPLAR [Concomitant]
  38. EXFORGE [Concomitant]
  39. METOPROLOL TARTRATE [Concomitant]
  40. OXANDRIN [Concomitant]
  41. MAGNEVIST [Suspect]
     Indication: NUCLEAR MAGNETIC RESONANCE IMAGING
     Dates: start: 19961030, end: 19961030
  42. MAGNEVIST [Suspect]
     Indication: NUCLEAR MAGNETIC RESONANCE IMAGING ABDOMINAL
     Dates: start: 19970430, end: 19970430
  43. CYTOXAN [Concomitant]
     Dates: start: 19880101, end: 19910101

REACTIONS (27)
  - PARAESTHESIA [None]
  - JOINT RANGE OF MOTION DECREASED [None]
  - PULMONARY FIBROSIS [None]
  - PAIN [None]
  - SKIN HYPERTROPHY [None]
  - SKIN DISORDER [None]
  - SCAR [None]
  - SKIN LESION [None]
  - JOINT CONTRACTURE [None]
  - MUSCULOSKELETAL STIFFNESS [None]
  - OEDEMA PERIPHERAL [None]
  - HYPOAESTHESIA [None]
  - MUSCULAR WEAKNESS [None]
  - SKIN TIGHTNESS [None]
  - NEPHROGENIC SYSTEMIC FIBROSIS [None]
  - INJURY [None]
  - GENERAL PHYSICAL HEALTH DETERIORATION [None]
  - SKIN WRINKLING [None]
  - ABASIA [None]
  - DYSPNOEA [None]
  - MUSCULOSKELETAL PAIN [None]
  - TENDON PAIN [None]
  - MYOCARDIAL FIBROSIS [None]
  - GAIT DISTURBANCE [None]
  - SKIN INDURATION [None]
  - SKIN HYPERPIGMENTATION [None]
  - MUSCLE TIGHTNESS [None]
